FAERS Safety Report 9775831 (Version 1)
Quarter: 2013Q4

REPORT INFORMATION
  Report Type: Spontaneous
  Country: US (occurrence: US)
  Receive Date: 20131220
  Receipt Date: 20131220
  Transmission Date: 20140711
  Serious: Yes (Other)
  Sender: FDA-Public Use
  Company Number: US-GLAXOSMITHKLINE-A1054136A

PATIENT
  Age: 70 Year
  Sex: Male

DRUGS (10)
  1. AVODART [Suspect]
     Indication: BENIGN PROSTATIC HYPERPLASIA
     Dosage: .5MG ALTERNATE DAYS
     Route: 048
     Dates: start: 201305
  2. FLOMAX [Concomitant]
  3. SIMVASTATIN [Concomitant]
  4. QUINAPRIL [Concomitant]
  5. HCTZ [Concomitant]
  6. VITAMIN D3 [Concomitant]
  7. OCUVITE [Concomitant]
  8. ECHINACEA [Concomitant]
  9. FISH OIL [Concomitant]
  10. TEMAZEPAM [Concomitant]

REACTIONS (2)
  - Haemorrhage [Not Recovered/Not Resolved]
  - Underdose [Not Recovered/Not Resolved]
